FAERS Safety Report 4711734-3 (Version None)
Quarter: 2005Q2

REPORT INFORMATION
  Report Type: 
  Country: None (occurrence: None)
  Receive Date: 20050629
  Receipt Date: 20050425
  Transmission Date: 20051028
  Serious: No
  Sender: FDA-Public Use
  Company Number: 05P-163-0298369-00

PATIENT
  Age: 56 Year
  Sex: Female
  Weight: 56.6996 kg

DRUGS (5)
  1. HUMIRA [Suspect]
     Indication: RHEUMATOID ARTHRITIS
     Dosage: SEE IMAGE
     Route: 058
     Dates: start: 20041201, end: 20050201
  2. HUMIRA [Suspect]
     Indication: RHEUMATOID ARTHRITIS
     Dosage: SEE IMAGE
     Route: 058
     Dates: start: 20050201
  3. CELECOXIB [Concomitant]
  4. ACETAMINOPHEN [Concomitant]
  5. PREDNISONE TAB [Concomitant]

REACTIONS (1)
  - JOINT STIFFNESS [None]
